FAERS Safety Report 10388187 (Version 1)
Quarter: 2014Q3

REPORT INFORMATION
  Report Type: Report from Study
  Country: BR (occurrence: BR)
  Receive Date: 20140815
  Receipt Date: 20140815
  Transmission Date: 20150326
  Serious: Yes (Other)
  Sender: FDA-Public Use
  Company Number: BR-GLAXOSMITHKLINE-A1085026A

PATIENT
  Sex: Female
  Weight: 69 kg

DRUGS (3)
  1. CARDIZEM [Concomitant]
     Active Substance: DILTIAZEM HYDROCHLORIDE
     Indication: HYPERTENSION
     Dosage: 60MG PER DAY
     Route: 048
     Dates: start: 2005
  2. SULPIRIDE + BROMAZEPAM [Concomitant]
     Indication: ANXIETY
     Dosage: 1TAB AS REQUIRED
     Route: 048
     Dates: start: 2008
  3. SERETIDE [Suspect]
     Active Substance: FLUTICASONE FUROATE\SALMETEROL XINAFOATE
     Indication: PLEURAL DISORDER
     Dosage: 1PUFF PER DAY
     Route: 065

REACTIONS (3)
  - Off label use [Not Recovered/Not Resolved]
  - Hypertensive crisis [Recovered/Resolved]
  - Diabetes mellitus [Not Recovered/Not Resolved]

NARRATIVE: CASE EVENT DATE: 2012
